FAERS Safety Report 6721804-6 (Version None)
Quarter: 2010Q2

REPORT INFORMATION
  Report Type: 
  Country: None (occurrence: None)
  Receive Date: 20100512
  Receipt Date: 20100505
  Transmission Date: 20101027
  Serious: No
  Sender: FDA-Public Use
  Company Number: BR-ROCHE-701749

PATIENT

DRUGS (1)
  1. ROACUTAN [Suspect]
     Indication: ACNE
     Route: 064

REACTIONS (2)
  - LIVE BIRTH [None]
  - NO ADVERSE EVENT [None]
